FAERS Safety Report 5715785-1 (Version None)
Quarter: 2008Q2

REPORT INFORMATION
  Report Type: 
  Country: None (occurrence: None)
  Receive Date: 20080423
  Receipt Date: 20080423
  Transmission Date: 20081010
  Serious: Yes (Life-Threatening, Other)
  Sender: FDA-Public Use
  Company Number: None

PATIENT
  Age: 16 Year
  Sex: Female
  Weight: 88.3 kg

DRUGS (1)
  1. SINGULAIR [Suspect]
     Indication: ASTHMA
     Dosage: 10MG ONCE DAILY PO
     Route: 048
     Dates: start: 20071201, end: 20080402

REACTIONS (6)
  - CRYING [None]
  - DEPRESSED MOOD [None]
  - EDUCATIONAL PROBLEM [None]
  - MOOD ALTERED [None]
  - SUICIDE ATTEMPT [None]
  - TEARFULNESS [None]
